FAERS Safety Report 12774644 (Version 1)
Quarter: 2016Q3

REPORT INFORMATION
  Report Type: Spontaneous
  Country: US (occurrence: US)
  Receive Date: 20160923
  Receipt Date: 20160923
  Transmission Date: 20161109
  Serious: No
  Sender: FDA-Public Use
  Company Number: US-ENDO PHARMACEUTICALS INC.-2015-003633

PATIENT
  Sex: Female

DRUGS (1)
  1. ALPRAZOLAM TABLETS [Suspect]
     Active Substance: ALPRAZOLAM
     Indication: SLEEP DISORDER
     Route: 048
     Dates: start: 2008

REACTIONS (1)
  - Drug ineffective [Not Recovered/Not Resolved]
